FAERS Safety Report 7689285-6 (Version None)
Quarter: 2011Q3

REPORT INFORMATION
  Report Type: 
  Country: None (occurrence: None)
  Receive Date: 20110817
  Receipt Date: 20110810
  Transmission Date: 20111222
  Serious: Yes (Other)
  Sender: FDA-Public Use
  Company Number: CA-PFIZER INC-2011077351

PATIENT
  Age: 62 Year
  Sex: Female
  Weight: 65.76 kg

DRUGS (1)
  1. XALATAN [Suspect]
     Indication: GLAUCOMA
     Dosage: 1 GTT, 1X/DAY IN RIGHT EYE
     Route: 047
     Dates: start: 20100101

REACTIONS (6)
  - INTRAOCULAR PRESSURE INCREASED [None]
  - EYE IRRITATION [None]
  - OCULAR HYPERAEMIA [None]
  - EYE PAIN [None]
  - EYE INFECTION [None]
  - EYE SWELLING [None]
